FAERS Safety Report 15886075 (Version 1)
Quarter: 2019Q1

REPORT INFORMATION
  Report Type: Spontaneous
  Country: DE (occurrence: DE)
  Receive Date: 20190129
  Receipt Date: 20190129
  Transmission Date: 20190417
  Serious: Yes (Other)
  Sender: FDA-Public Use
  Company Number: DE-NAPPMUNDI-GBR-2018-0063856

PATIENT
  Age: 61 Year
  Sex: Male

DRUGS (15)
  1. MORPHINE SULFATE. [Suspect]
     Active Substance: MORPHINE SULFATE
     Indication: PRODUCT USED FOR UNKNOWN INDICATION
     Dosage: UNK
     Route: 065
     Dates: start: 20180425
  2. FORTECORTIN                        /00016001/ [Concomitant]
     Active Substance: DEXAMETHASONE
     Indication: PRODUCT USED FOR UNKNOWN INDICATION
     Dosage: 8 MG, TID
     Route: 042
  3. ABSTRAL [Suspect]
     Active Substance: FENTANYL CITRATE
     Indication: PRODUCT USED FOR UNKNOWN INDICATION
     Dosage: 100 MCG, PRN
     Route: 060
     Dates: start: 20180302
  4. PANTOPRAZOLE [Concomitant]
     Active Substance: PANTOPRAZOLE
     Indication: PRODUCT USED FOR UNKNOWN INDICATION
     Dosage: 40 MG, DAILY [1-0-0]
     Route: 065
  5. CLEXANE [Concomitant]
     Active Substance: ENOXAPARIN SODIUM
     Indication: PRODUCT USED FOR UNKNOWN INDICATION
     Dosage: 0.4 ML, DAILY [0-0-1]
     Route: 058
  6. MST (MORPHINE SULFATE) [Suspect]
     Active Substance: MORPHINE SULFATE
     Indication: PRODUCT USED FOR UNKNOWN INDICATION
     Dosage: UNK
     Route: 065
     Dates: start: 20180302
  7. ABSTRAL [Suspect]
     Active Substance: FENTANYL CITRATE
     Dosage: UNK, 30 MIN PRIOR TO DRESSING CHANGES
     Route: 060
     Dates: start: 20180405
  8. MST (MORPHINE SULFATE) [Suspect]
     Active Substance: MORPHINE SULFATE
     Dosage: 4 DF, DAILY [10 MG, 2-0-2]
     Route: 065
  9. ABSTRAL [Suspect]
     Active Substance: FENTANYL CITRATE
     Dosage: 200 UG, PRIOR TO DRESSING CHANGES
     Route: 060
     Dates: start: 201804
  10. ABSTRAL [Suspect]
     Active Substance: FENTANYL CITRATE
     Dosage: 2 DF, DAILY [2 DOSAGE FORMS PRIOR TO DRESSING CHANGES AND DRESSING CHANGE ONLY ONCE DAILY]
     Route: 060
     Dates: start: 20180407
  11. MIDAZOLAM [Suspect]
     Active Substance: MIDAZOLAM HYDROCHLORIDE
     Indication: PRODUCT USED FOR UNKNOWN INDICATION
     Dosage: 2.5 MG, UNK
     Route: 058
     Dates: start: 201804
  12. NOVALGIN                           /00169801/ [Concomitant]
     Active Substance: ACETAMINOPHEN\CAFFEINE\PROPYPHENAZONE
     Indication: PRODUCT USED FOR UNKNOWN INDICATION
     Dosage: 500 MG, TID
     Route: 065
  13. CITALOPRAM [Concomitant]
     Active Substance: CITALOPRAM HYDROBROMIDE
     Indication: PRODUCT USED FOR UNKNOWN INDICATION
     Dosage: 20 MG, DAILY [1-0-0]
     Route: 065
  14. ABSTRAL [Suspect]
     Active Substance: FENTANYL CITRATE
     Dosage: 200 UG, AS NECESARY UP TO 4 TIMES DAILY
     Route: 060
     Dates: start: 20180410
  15. DRONABINOL. [Concomitant]
     Active Substance: DRONABINOL
     Indication: PRODUCT USED FOR UNKNOWN INDICATION
     Dosage: 12 DROP, DAILY [6 GTT, 1-0-1]
     Route: 065

REACTIONS (7)
  - Drug ineffective [Recovering/Resolving]
  - Abscess rupture [Unknown]
  - Generalised tonic-clonic seizure [Recovered/Resolved]
  - Abscess [Unknown]
  - Dyspnoea [Unknown]
  - Lymphoedema [Unknown]
  - Inflammation of wound [Unknown]

NARRATIVE: CASE EVENT DATE: 2018
